FAERS Safety Report 5618841-1 (Version None)
Quarter: 2008Q1

REPORT INFORMATION
  Report Type: 
  Country: None (occurrence: None)
  Receive Date: 20080114
  Receipt Date: 20070627
  Transmission Date: 20080703
  Serious: Yes (Other)
  Sender: FDA-Public Use
  Company Number: 2007053130

PATIENT
  Age: 23 Year
  Sex: Female
  Weight: 52 kg

DRUGS (2)
  1. DEPO-SUBQ PROVERA 104 [Suspect]
     Indication: CONTRACEPTION
     Dosage: SEE IMAGE
     Route: 058
     Dates: start: 20060925, end: 20060925
  2. DEPO-SUBQ PROVERA 104 [Suspect]
     Indication: CONTRACEPTION
     Dosage: SEE IMAGE
     Route: 058
     Dates: start: 20070319, end: 20070319

REACTIONS (1)
  - INJECTION SITE REACTION [None]
